FAERS Safety Report 18626847 (Version 1)
Quarter: 2020Q4

REPORT INFORMATION
  Report Type: Other
  Country: FR (occurrence: FR)
  Receive Date: 20201217
  Receipt Date: 20201217
  Transmission Date: 20210114
  Serious: Yes (Hospitalization, Other)
  Sender: FDA-Public Use
  Company Number: FR-ACI HEALTHCARE LIMITED-2103102

PATIENT
  Age: 63 Year
  Sex: Male

DRUGS (11)
  1. SODIUM BICARBONATE. [Concomitant]
     Active Substance: SODIUM BICARBONATE
     Route: 042
  2. MIDAZOLAM. [Concomitant]
     Active Substance: MIDAZOLAM
     Route: 065
  3. ARGIPRESSIN [Concomitant]
     Active Substance: ARGIPRESSIN
     Route: 065
  4. ALBUMIN [Concomitant]
     Active Substance: ALBUMIN HUMAN
     Route: 065
  5. NOREPINEPHRINE. [Concomitant]
     Active Substance: NOREPINEPHRINE
     Route: 065
  6. CLONAZEPAM. [Concomitant]
     Active Substance: CLONAZEPAM
     Route: 065
  7. THIOPENTAL [Concomitant]
     Active Substance: THIOPENTAL
     Route: 065
  8. HYDROCORTISONE HEMI-SUCCINATE [Concomitant]
     Route: 065
  9. FIBRINOGEN [Concomitant]
     Active Substance: FIBRINOGEN HUMAN
     Route: 065
  10. LEVETIRACETAM. [Suspect]
     Active Substance: LEVETIRACETAM
     Indication: STATUS EPILEPTICUS
     Route: 065
  11. ISOPRENALINE [Concomitant]
     Active Substance: ISOPROTERENOL HYDROCHLORIDE
     Route: 065

REACTIONS (1)
  - Drug ineffective [Unknown]
